FAERS Safety Report 20888952 (Version 2)
Quarter: 2022Q2

REPORT INFORMATION
  Report Type: Spontaneous
  Country: AU (occurrence: AU)
  Receive Date: 20220530
  Receipt Date: 20220627
  Transmission Date: 20220721
  Serious: Yes (Other)
  Sender: FDA-Public Use
  Company Number: AU-BEH-2022145632

PATIENT
  Age: 71 Year
  Sex: Male

DRUGS (2)
  1. HIZENTRA [Suspect]
     Active Substance: HUMAN IMMUNOGLOBULIN G
     Indication: Chronic inflammatory demyelinating polyradiculoneuropathy
     Dosage: 40 GRAM, QW
     Route: 058
     Dates: start: 202111
  2. HIZENTRA [Suspect]
     Active Substance: HUMAN IMMUNOGLOBULIN G
     Dosage: UNK
     Route: 058
     Dates: start: 20220508

REACTIONS (14)
  - Infusion site abscess [Unknown]
  - Wrong technique in product usage process [Unknown]
  - Infusion site haematoma [Recovered/Resolved]
  - Infusion site haemorrhage [Recovered/Resolved]
  - Infusion site scab [Recovered/Resolved]
  - Infusion site erythema [Recovered/Resolved]
  - Infusion site bruising [Recovered/Resolved]
  - Wrong technique in product usage process [Recovered/Resolved]
  - Infusion site induration [Unknown]
  - Wrong technique in product usage process [Unknown]
  - Infusion site erythema [Unknown]
  - Wrong technique in product usage process [Unknown]
  - Infusion site swelling [Unknown]
  - Wrong technique in product usage process [Unknown]

NARRATIVE: CASE EVENT DATE: 20220516
